FAERS Safety Report 5735118-4 (Version None)
Quarter: 2008Q2

REPORT INFORMATION
  Report Type: 
  Country: None (occurrence: None)
  Receive Date: 20080508
  Receipt Date: 20080501
  Transmission Date: 20081010
  Serious: Yes (Hospitalization)
  Sender: FDA-Public Use
  Company Number: 2008BI004210

PATIENT
  Age: 47 Year
  Sex: Female
  Weight: 80.7403 kg

DRUGS (5)
  1. AVONEX [Suspect]
     Indication: MULTIPLE SCLEROSIS
     Dosage: 30 UG;QW;IM
     Route: 030
     Dates: start: 20060601
  2. GINSENG [Concomitant]
  3. MSM [Concomitant]
  4. GLUCOSAMINE SULFATE [Concomitant]
  5. GREEN TEA [Concomitant]

REACTIONS (8)
  - BRONCHITIS VIRAL [None]
  - CONDITION AGGRAVATED [None]
  - DEPRESSION [None]
  - MULTIPLE SCLEROSIS [None]
  - MUSCULOSKELETAL PAIN [None]
  - NUCLEAR MAGNETIC RESONANCE IMAGING BRAIN ABNORMAL [None]
  - SYNCOPE [None]
  - THINKING ABNORMAL [None]
